FAERS Safety Report 20373387 (Version 1)
Quarter: 2022Q1

REPORT INFORMATION
  Report Type: Spontaneous
  Country: CA (occurrence: CA)
  Receive Date: 20220125
  Receipt Date: 20220125
  Transmission Date: 20220424
  Serious: Yes (Hospitalization, Other)
  Sender: FDA-Public Use
  Company Number: CA-TEVA-2022-CA-2001646

PATIENT
  Age: 60 Year
  Sex: Male

DRUGS (28)
  1. LAMOTRIGINE [Suspect]
     Active Substance: LAMOTRIGINE
     Indication: Depression
     Route: 065
  2. LAMOTRIGINE [Suspect]
     Active Substance: LAMOTRIGINE
     Route: 065
  3. MIRTAZAPINE [Suspect]
     Active Substance: MIRTAZAPINE
     Indication: Major depression
     Route: 065
  4. QUETIAPINE FUMARATE [Suspect]
     Active Substance: QUETIAPINE FUMARATE
     Indication: Anxiety
     Route: 048
  5. QUETIAPINE FUMARATE [Suspect]
     Active Substance: QUETIAPINE FUMARATE
     Indication: Major depression
     Route: 048
  6. QUETIAPINE FUMARATE [Suspect]
     Active Substance: QUETIAPINE FUMARATE
     Route: 048
  7. QUETIAPINE FUMARATE [Suspect]
     Active Substance: QUETIAPINE FUMARATE
     Route: 048
  8. QUETIAPINE FUMARATE [Suspect]
     Active Substance: QUETIAPINE FUMARATE
     Route: 048
  9. QUETIAPINE FUMARATE [Suspect]
     Active Substance: QUETIAPINE FUMARATE
     Route: 048
  10. VENLAFAXINE HYDROCHLORIDE [Suspect]
     Active Substance: VENLAFAXINE HYDROCHLORIDE
     Indication: Major depression
     Route: 065
  11. VENLAFAXINE HYDROCHLORIDE [Suspect]
     Active Substance: VENLAFAXINE HYDROCHLORIDE
     Indication: Anxiety
     Route: 065
  12. VENLAFAXINE HYDROCHLORIDE [Suspect]
     Active Substance: VENLAFAXINE HYDROCHLORIDE
     Route: 065
  13. VENLAFAXINE HYDROCHLORIDE [Suspect]
     Active Substance: VENLAFAXINE HYDROCHLORIDE
     Route: 065
  14. ZOPICLONE [Suspect]
     Active Substance: ZOPICLONE
     Indication: Major depression
     Route: 065
  15. ZOPICLONE [Suspect]
     Active Substance: ZOPICLONE
     Route: 065
  16. BUPROPION [Suspect]
     Active Substance: BUPROPION
     Indication: Major depression
     Route: 065
  17. FLURAZEPAM [Suspect]
     Active Substance: FLURAZEPAM HYDROCHLORIDE
     Indication: Major depression
     Route: 065
  18. LEVOMEPROMAZINE MALEATE [Suspect]
     Active Substance: LEVOMEPROMAZINE MALEATE
     Indication: Major depression
     Route: 065
  19. LEVOMEPROMAZINE MALEATE [Suspect]
     Active Substance: LEVOMEPROMAZINE MALEATE
     Indication: Anxiety
     Route: 065
  20. LEVOMEPROMAZINE MALEATE [Suspect]
     Active Substance: LEVOMEPROMAZINE MALEATE
     Indication: Depression
     Route: 065
  21. LEVOMEPROMAZINE MALEATE [Suspect]
     Active Substance: LEVOMEPROMAZINE MALEATE
     Route: 065
  22. LEVOMEPROMAZINE MALEATE [Suspect]
     Active Substance: LEVOMEPROMAZINE MALEATE
     Route: 065
  23. LEVOMEPROMAZINE MALEATE [Suspect]
     Active Substance: LEVOMEPROMAZINE MALEATE
     Route: 065
  24. LITHIUM [Suspect]
     Active Substance: LITHIUM
     Indication: Major depression
     Route: 065
  25. LITHIUM [Suspect]
     Active Substance: LITHIUM
     Route: 065
  26. NORTRIPTYLINE HYDROCHLORIDE [Suspect]
     Active Substance: NORTRIPTYLINE HYDROCHLORIDE
     Indication: Major depression
     Route: 065
  27. NORTRIPTYLINE HYDROCHLORIDE [Suspect]
     Active Substance: NORTRIPTYLINE HYDROCHLORIDE
     Indication: Anxiety
     Route: 065
  28. TEMAZEPAM [Suspect]
     Active Substance: TEMAZEPAM
     Indication: Major depression
     Route: 065

REACTIONS (16)
  - Abulia [Recovered/Resolved]
  - Decreased interest [Recovered/Resolved]
  - Depressed mood [Recovered/Resolved]
  - Depression [Recovered/Resolved]
  - Emotional distress [Recovered/Resolved]
  - Feelings of worthlessness [Recovered/Resolved]
  - Insomnia [Recovered/Resolved]
  - Major depression [Recovered/Resolved]
  - Obsessive-compulsive disorder [Recovered/Resolved]
  - Psychomotor hyperactivity [Recovered/Resolved]
  - Restless legs syndrome [Recovered/Resolved]
  - Sleep disorder [Recovered/Resolved]
  - Suicide attempt [Recovered/Resolved]
  - Therapeutic product effect incomplete [Recovered/Resolved]
  - Drug ineffective [Recovered/Resolved]
  - Drug intolerance [Recovered/Resolved]
